FAERS Safety Report 11271019 (Version 2)
Quarter: 2015Q3

REPORT INFORMATION
  Report Type: Report from Study
  Country: US (occurrence: US)
  Receive Date: 20150714
  Receipt Date: 20150722
  Transmission Date: 20151125
  Serious: Yes (Hospitalization, Other)
  Sender: FDA-Public Use
  Company Number: US-TAKEDA-2015MPI004548

PATIENT
  Age: 13 Year
  Sex: Male
  Weight: 58.2 kg

DRUGS (7)
  1. VELCADE [Suspect]
     Active Substance: BORTEZOMIB
     Indication: PRECURSOR T-LYMPHOBLASTIC LYMPHOMA/LEUKAEMIA
     Dosage: 1.3 MG/M2, UNK
     Route: 042
     Dates: start: 20150607, end: 20150618
  2. VINCRISTINE [Suspect]
     Active Substance: VINCRISTINE
     Indication: PRECURSOR T-LYMPHOBLASTIC LYMPHOMA/LEUKAEMIA
     Dosage: 1.5 MG/M2, UNK
     Route: 042
     Dates: start: 20150607, end: 20150629
  3. DAUNORUBICIN [Suspect]
     Active Substance: DAUNORUBICIN
     Indication: PRECURSOR T-LYMPHOBLASTIC LYMPHOMA/LEUKAEMIA
     Dosage: 25 MG/M2, UNK
     Route: 042
     Dates: start: 20150607, end: 20150629
  4. PEGASPARGASE [Suspect]
     Active Substance: PEGASPARGASE
     Indication: PRECURSOR T-LYMPHOBLASTIC LYMPHOMA/LEUKAEMIA
     Dosage: UNK
     Route: 042
     Dates: start: 20150607, end: 20150625
  5. METHOTREXATE [Suspect]
     Active Substance: METHOTREXATE
     Indication: PRECURSOR T-LYMPHOBLASTIC LYMPHOMA/LEUKAEMIA
     Dosage: 8-15 MG
     Route: 037
     Dates: start: 20150607, end: 20150615
  6. CYTARABINE. [Suspect]
     Active Substance: CYTARABINE
     Indication: PRECURSOR T-LYMPHOBLASTIC LYMPHOMA/LEUKAEMIA
     Dosage: 30-70 MG
     Route: 037
     Dates: start: 20150607, end: 20150607
  7. DEXAMETHASONE. [Suspect]
     Active Substance: DEXAMETHASONE
     Indication: PRECURSOR T-LYMPHOBLASTIC LYMPHOMA/LEUKAEMIA
     Dosage: 3 MG/M2, BID
     Route: 048
     Dates: start: 20150607, end: 20150704

REACTIONS (6)
  - Mucosal infection [Not Recovered/Not Resolved]
  - Blood bilirubin increased [Not Recovered/Not Resolved]
  - Activated partial thromboplastin time prolonged [Not Recovered/Not Resolved]
  - Gamma-glutamyltransferase increased [Not Recovered/Not Resolved]
  - Hepatic failure [Not Recovered/Not Resolved]
  - Skin infection [Not Recovered/Not Resolved]

NARRATIVE: CASE EVENT DATE: 20150702
